FAERS Safety Report 23652160 (Version 1)
Quarter: 2024Q1

REPORT INFORMATION
  Report Type: Spontaneous
  Country: DE (occurrence: DE)
  Receive Date: 20240320
  Receipt Date: 20240320
  Transmission Date: 20240410
  Serious: Yes (Other)
  Sender: FDA-Public Use
  Company Number: DE-ALKEM LABORATORIES LIMITED-DE-ALKEM-2023-16978

PATIENT
  Sex: Male

DRUGS (15)
  1. EVEROLIMUS [Suspect]
     Active Substance: EVEROLIMUS
     Indication: Arrhythmia
     Dosage: 0.2 MILLIGRAM, BID
     Route: 065
  2. EVEROLIMUS [Suspect]
     Active Substance: EVEROLIMUS
     Indication: Tuberous sclerosis complex
     Dosage: 0.13 MILLIGRAM, QD (EVERY ONE DAY)
     Route: 065
  3. EVEROLIMUS [Suspect]
     Active Substance: EVEROLIMUS
     Indication: Supraventricular tachycardia
     Dosage: 0.125 MILLIGRAM, QD (AT 4005 GRAM BODY WEIGHT)
     Route: 065
  4. EVEROLIMUS [Suspect]
     Active Substance: EVEROLIMUS
     Dosage: 0.15 MILLIGRAM, BID
     Route: 065
  5. EVEROLIMUS [Suspect]
     Active Substance: EVEROLIMUS
     Dosage: 0.2 MILLIGRAM, BID (RESTARTED DOSE)
     Route: 065
  6. EVEROLIMUS [Suspect]
     Active Substance: EVEROLIMUS
     Dosage: 0.1 MILLIGRAM, BID
     Route: 065
  7. EVEROLIMUS [Suspect]
     Active Substance: EVEROLIMUS
     Dosage: UNK (RECHALLENGE DOSE)
     Route: 065
  8. METOPROLOL SUCCINATE [Suspect]
     Active Substance: METOPROLOL SUCCINATE
     Indication: Arrhythmia
     Dosage: UNK
     Route: 065
  9. METOPROLOL SUCCINATE [Suspect]
     Active Substance: METOPROLOL SUCCINATE
     Indication: Supraventricular tachycardia
  10. AMIODARONE [Suspect]
     Active Substance: AMIODARONE
     Indication: Arrhythmia
     Dosage: UNK
     Route: 065
  11. AMIODARONE [Suspect]
     Active Substance: AMIODARONE
     Indication: Supraventricular tachycardia
     Dosage: UNK (PAST DRUG)
     Route: 065
  12. FLECAINIDE [Suspect]
     Active Substance: FLECAINIDE
     Indication: Arrhythmia
     Dosage: UNK
     Route: 065
  13. FLECAINIDE [Suspect]
     Active Substance: FLECAINIDE
     Indication: Supraventricular tachycardia
     Dosage: UNK (PAST DRUG)
     Route: 065
  14. METILDIGOXIN [Suspect]
     Active Substance: METILDIGOXIN
     Indication: Arrhythmia
     Dosage: UNK
     Route: 065
  15. METILDIGOXIN [Suspect]
     Active Substance: METILDIGOXIN
     Indication: Supraventricular tachycardia

REACTIONS (6)
  - Neutropenia [Unknown]
  - Rebound effect [Unknown]
  - Supraventricular tachycardia [Recovered/Resolved]
  - Upper respiratory tract infection [Unknown]
  - Product use issue [Unknown]
  - Drug ineffective [Unknown]
